FAERS Safety Report 7513261-7 (Version None)
Quarter: 2011Q2

REPORT INFORMATION
  Report Type: 
  Country: None (occurrence: None)
  Receive Date: 20110531
  Receipt Date: 20110511
  Transmission Date: 20111010
  Serious: Yes (Hospitalization, Other)
  Sender: FDA-Public Use
  Company Number: US-BAYER-2010-003053

PATIENT
  Age: 22 Year
  Sex: Female
  Weight: 77.551 kg

DRUGS (9)
  1. YASMIN [Suspect]
     Dosage: UNK
     Dates: start: 20030509, end: 20030630
  2. LORTAB [Concomitant]
  3. AMBIEN [Concomitant]
     Dosage: UNK
     Route: 048
     Dates: start: 20060101
  4. YASMIN [Suspect]
     Dosage: UNK
     Dates: start: 20070313, end: 20081001
  5. YASMIN [Suspect]
     Dosage: UNK
     Dates: start: 20030725, end: 20040103
  6. YASMIN [Suspect]
     Indication: CONTRACEPTION
     Dosage: UNK
     Route: 048
     Dates: start: 20030501, end: 20051101
  7. YASMIN [Suspect]
     Dosage: UNK
     Dates: start: 20040629
  8. SEASONALE [Concomitant]
     Dosage: UNK
     Route: 048
     Dates: start: 20080711
  9. XANAX [Concomitant]
     Indication: ANXIETY
     Dosage: UNK
     Route: 048
     Dates: start: 20060101

REACTIONS (4)
  - CHOLECYSTITIS CHRONIC [None]
  - PAIN [None]
  - GALLBLADDER CHOLESTEROLOSIS [None]
  - CHOLECYSTECTOMY [None]
